FAERS Safety Report 24749332 (Version 1)
Quarter: 2024Q4

REPORT INFORMATION
  Report Type: Spontaneous
  Country: US (occurrence: US)
  Receive Date: 20241218
  Receipt Date: 20241218
  Transmission Date: 20250115
  Serious: Yes (Other)
  Sender: ALEXION PHARMACEUTICALS
  Company Number: US-AstraZeneca-CH-00766482A

PATIENT

DRUGS (4)
  1. SAPHNELO [Suspect]
     Active Substance: ANIFROLUMAB-FNIA
     Route: 065
  2. SAPHNELO [Suspect]
     Active Substance: ANIFROLUMAB-FNIA
     Route: 065
  3. SAPHNELO [Suspect]
     Active Substance: ANIFROLUMAB-FNIA
     Route: 065
  4. SAPHNELO [Suspect]
     Active Substance: ANIFROLUMAB-FNIA
     Route: 065

REACTIONS (19)
  - Malaise [Unknown]
  - Pain [Unknown]
  - Pallor [Unknown]
  - Hunger [Unknown]
  - Sneezing [Unknown]
  - Confusional state [Unknown]
  - Headache [Unknown]
  - Hidradenitis [Unknown]
  - Insomnia [Unknown]
  - Memory impairment [Unknown]
  - Noninfective gingivitis [Unknown]
  - Hypersomnia [Unknown]
  - Systemic lupus erythematosus [Unknown]
  - Musculoskeletal stiffness [Unknown]
  - Fatigue [Unknown]
  - Influenza like illness [Unknown]
  - Motor dysfunction [Unknown]
  - Hypoaesthesia [Unknown]
  - Burning sensation [Unknown]
